FAERS Safety Report 16892071 (Version 1)
Quarter: 2019Q4

REPORT INFORMATION
  Report Type: Report from Study
  Country: US (occurrence: US)
  Receive Date: 20191007
  Receipt Date: 20191007
  Transmission Date: 20200122
  Serious: Yes (Hospitalization)
  Sender: FDA-Public Use
  Company Number: US-MALLINCKRODT-T201905130

PATIENT
  Sex: Male

DRUGS (3)
  1. REPOSITORY CORTICOTROPIN INJECTION [Suspect]
     Active Substance: CORTICOTROPIN
     Indication: PROTEINURIA
     Dosage: 80 UNITS/1ML, 2 TIMES PER WEEK, WEDNESDAY AND SUNDAY
     Route: 058
     Dates: start: 20190508, end: 2019
  2. PREDNISONE. [Suspect]
     Active Substance: PREDNISONE
     Indication: PRODUCT USED FOR UNKNOWN INDICATION
     Dosage: UNK
     Route: 065
     Dates: start: 2019
  3. REPOSITORY CORTICOTROPIN INJECTION [Suspect]
     Active Substance: CORTICOTROPIN
     Indication: NEPHROTIC SYNDROME
     Dosage: 80 UNITS/1ML, 2 TIMES PER WEEK, WEDNESDAY AND SUNDAY FOR 6 MONTHS
     Route: 058
     Dates: start: 20190508, end: 20190901

REACTIONS (14)
  - Blood potassium decreased [Unknown]
  - Therapy cessation [Unknown]
  - Dry mouth [Unknown]
  - Fatigue [Unknown]
  - Cough [Unknown]
  - Drug ineffective [Not Recovered/Not Resolved]
  - Renal impairment [Not Recovered/Not Resolved]
  - Peripheral swelling [Unknown]
  - Blood calcium decreased [Unknown]
  - Fluid retention [Unknown]
  - Blood electrolytes decreased [Not Recovered/Not Resolved]
  - Dehydration [Recovering/Resolving]
  - Weight increased [Unknown]
  - Taste disorder [Unknown]

NARRATIVE: CASE EVENT DATE: 2019
